FAERS Safety Report 6845063-9 (Version None)
Quarter: 2010Q3

REPORT INFORMATION
  Report Type: 
  Country: None (occurrence: None)
  Receive Date: 20100715
  Receipt Date: 20070810
  Transmission Date: 20110219
  Serious: No
  Sender: FDA-Public Use
  Company Number: US-PFIZER INC-2007068178

PATIENT
  Sex: Male
  Weight: 68.181 kg

DRUGS (3)
  1. CHANTIX [Suspect]
     Indication: SMOKING CESSATION THERAPY
     Dates: start: 20070702
  2. MOTRIN [Concomitant]
  3. CYCLOBENZAPRINE HYDROCHLORIDE [Concomitant]

REACTIONS (4)
  - AGGRESSION [None]
  - DYSPEPSIA [None]
  - IRRITABILITY [None]
  - TREMOR [None]
